FAERS Safety Report 7531554-4 (Version None)
Quarter: 2011Q2

REPORT INFORMATION
  Report Type: 
  Country: None (occurrence: None)
  Receive Date: 20110601
  Receipt Date: 20110517
  Transmission Date: 20111010
  Serious: Yes (Other)
  Sender: FDA-Public Use
  Company Number: AUR-APL-2011-01713

PATIENT
  Age: 49 Year
  Sex: Female

DRUGS (6)
  1. PAROXETINE HCL [Concomitant]
  2. LAMOTRIGINE [Suspect]
     Indication: CONVULSION
     Dosage: 50 MG, ORAL
     Route: 048
     Dates: end: 20100801
  3. AMISULPRIDE [Suspect]
     Indication: SCHIZOPHRENIA
     Dosage: 200 MG, ORAL
     Route: 048
     Dates: end: 20100801
  4. CLOZAPINE [Suspect]
     Indication: SCHIZOPHRENIA
     Dosage: 600 MG, ORAL
     Route: 048
     Dates: start: 20030101, end: 20041001
  5. RAMIPRIL [Concomitant]
  6. TEMAZEPAM [Concomitant]

REACTIONS (6)
  - WHITE BLOOD CELL COUNT INCREASED [None]
  - BREAST CANCER [None]
  - PLATELET COUNT DECREASED [None]
  - BREAST ABSCESS [None]
  - MENTAL DISORDER [None]
  - METASTASES TO SPINE [None]
